FAERS Safety Report 18727417 (Version 4)
Quarter: 2021Q1

REPORT INFORMATION
  Report Type: Report from Study
  Country: US (occurrence: US)
  Receive Date: 20210111
  Receipt Date: 20210205
  Transmission Date: 20210419
  Serious: No
  Sender: FDA-Public Use
  Company Number: US-SUNOVION-2020SUN003931

PATIENT
  Age: 41 Year
  Sex: Female

DRUGS (2)
  1. KYNMOBI [Suspect]
     Active Substance: APOMORPHINE HYDROCHLORIDE
     Indication: PARKINSON^S DISEASE
     Dosage: 15 MG, 2ND DOSE, 1 FILM/SL
     Route: 060
     Dates: start: 20210108, end: 20210108
  2. KYNMOBI [Suspect]
     Active Substance: APOMORPHINE HYDROCHLORIDE
     Dosage: 10 MG, 1ST DOSE,  1 FILM/SL
     Route: 060
     Dates: start: 20201231, end: 20201231

REACTIONS (5)
  - Mobility decreased [Recovered/Resolved]
  - Weight decreased [Unknown]
  - Tremor [Recovered/Resolved]
  - Orthostatic hypotension [Unknown]
  - Dizziness [Recovered/Resolved]

NARRATIVE: CASE EVENT DATE: 20201231
